FAERS Safety Report 19702546 (Version 1)
Quarter: 2021Q3

REPORT INFORMATION
  Report Type: Spontaneous
  Country: US (occurrence: US)
  Receive Date: 20210815
  Receipt Date: 20210815
  Transmission Date: 20211014
  Serious: No
  Sender: FDA-Public Use
  Company Number: US-JNJFOC-20210803045

PATIENT
  Age: 70 Year
  Sex: Male

DRUGS (1)
  1. TREMFYA [Suspect]
     Active Substance: GUSELKUMAB
     Indication: PSORIASIS
     Dosage: HE PATIENT HAS ONLY HAD THE FIRST 2 LOADING DOSES FOR TREMFYA AT WEEK 0 AND WEEK 4.
     Route: 058

REACTIONS (1)
  - Leukoplakia [Recovering/Resolving]

NARRATIVE: CASE EVENT DATE: 20210802
